FAERS Safety Report 5310680-4 (Version None)
Quarter: 2007Q2

REPORT INFORMATION
  Report Type: 
  Country: None (occurrence: None)
  Receive Date: 20070428
  Receipt Date: 20070417
  Transmission Date: 20071010
  Serious: Yes (Other)
  Sender: FDA-Public Use
  Company Number: US-PFIZER INC-2007031149

PATIENT
  Age: 49 Year
  Sex: Female
  Weight: 109.8 kg

DRUGS (4)
  1. AZITHROMYCIN [Suspect]
     Indication: BRONCHITIS
     Dosage: DAILY DOSE:250MG
     Route: 048
     Dates: start: 20070314, end: 20070318
  2. AZITHROMYCIN [Suspect]
     Dosage: DAILY DOSE:250MG
     Route: 048
     Dates: start: 20070401, end: 20070405
  3. PREVALITE [Suspect]
     Dates: start: 20070301, end: 20070317
  4. PREVALITE [Suspect]
     Dates: start: 20070324, end: 20070403

REACTIONS (3)
  - CARDIAC MURMUR [None]
  - CHEST DISCOMFORT [None]
  - HEART RATE INCREASED [None]
